FAERS Safety Report 6754525-4 (Version None)
Quarter: 2010Q2

REPORT INFORMATION
  Report Type: 
  Country: None (occurrence: None)
  Receive Date: 20100524
  Receipt Date: 20100314
  Transmission Date: 20101027
  Serious: No
  Sender: FDA-Public Use
  Company Number: 009049

PATIENT
  Sex: Female

DRUGS (2)
  1. CIMZIA [Suspect]
     Indication: CROHN'S DISEASE
     Dosage: 400 MG SUBCUTANEOUS
     Route: 058
     Dates: start: 20100113
  2. LEVSIN (NOT SPECIFIED) [Suspect]

REACTIONS (4)
  - ABDOMINAL PAIN [None]
  - FATIGUE [None]
  - FREQUENT BOWEL MOVEMENTS [None]
  - RASH ERYTHEMATOUS [None]
